FAERS Safety Report 6261217-7 (Version None)
Quarter: 2009Q3

REPORT INFORMATION
  Report Type: 
  Country: None (occurrence: None)
  Receive Date: 20090707
  Receipt Date: 20090629
  Transmission Date: 20100115
  Serious: Yes (Other)
  Sender: FDA-Public Use
  Company Number: 2009SP013088

PATIENT
  Age: 52 Year
  Sex: Female
  Weight: 74.8435 kg

DRUGS (9)
  1. MIRALAX [Suspect]
     Indication: CONSTIPATION
     Dosage: SEE IMAGE, PO
     Route: 048
     Dates: start: 20090608
  2. MIRALAX [Suspect]
     Indication: CONSTIPATION
     Dosage: SEE IMAGE, PO
     Route: 048
     Dates: start: 20090609
  3. MIRALAX [Suspect]
     Indication: CONSTIPATION
     Dosage: SEE IMAGE, PO
     Route: 048
     Dates: start: 20090609
  4. MIRALAX [Suspect]
     Indication: CONSTIPATION
     Dosage: SEE IMAGE, PO
     Route: 048
     Dates: start: 20090610
  5. MIRALAX [Suspect]
     Indication: CONSTIPATION
     Dosage: SEE IMAGE, PO
     Route: 048
     Dates: start: 20090610
  6. CALAN [Concomitant]
  7. NEXIUM [Concomitant]
  8. VERAPAMIL [Concomitant]
  9. SYNTHROID [Concomitant]

REACTIONS (7)
  - ARTHRALGIA [None]
  - HAND DEFORMITY [None]
  - MUSCLE CONTRACTURE [None]
  - MUSCLE SPASMS [None]
  - MYOSITIS [None]
  - PAIN [None]
  - TRISMUS [None]
